FAERS Safety Report 5855857-4 (Version None)
Quarter: 2008Q3

REPORT INFORMATION
  Report Type: 
  Country: None (occurrence: None)
  Receive Date: 20080825
  Receipt Date: 20080212
  Transmission Date: 20090109
  Serious: No
  Sender: FDA-Public Use
  Company Number: A0709122A

PATIENT
  Age: 20 Year
  Sex: Female

DRUGS (3)
  1. MALARONE [Suspect]
     Indication: DRUG USE FOR UNKNOWN INDICATION
     Route: 048
     Dates: start: 20080102, end: 20080119
  2. CIPRO [Concomitant]
  3. TYLENOL (CAPLET) [Concomitant]

REACTIONS (1)
  - MENSTRUATION DELAYED [None]
